FAERS Safety Report 9165606 (Version 1)
Quarter: 2013Q1

REPORT INFORMATION
  Report Type: Spontaneous
  Country: FR (occurrence: FR)
  Receive Date: 20130315
  Receipt Date: 20130315
  Transmission Date: 20140127
  Serious: Yes (Hospitalization)
  Sender: FDA-Public Use
  Company Number: FR-ROCHE-1200585

PATIENT
  Age: 72 Year
  Sex: Male

DRUGS (14)
  1. MABTHERA [Suspect]
     Indication: B-CELL LYMPHOMA
     Route: 042
     Dates: start: 20121112, end: 20130113
  2. LEVACT [Suspect]
     Indication: B-CELL LYMPHOMA
     Route: 042
     Dates: start: 20121112, end: 20130114
  3. CIFLOX [Suspect]
     Indication: PYREXIA
     Route: 048
     Dates: start: 20130114, end: 20130114
  4. LEVOTHYROX [Concomitant]
  5. NAABAK [Concomitant]
     Route: 065
  6. HYLOVIS [Concomitant]
     Route: 065
  7. FLUDARABINE [Concomitant]
  8. BENDAMUSTINE [Concomitant]
  9. FLUDARABINE [Concomitant]
  10. SPECIAFOLDINE [Concomitant]
     Dosage: 1 TABLET DAILY
     Route: 065
  11. ZELITREX [Concomitant]
     Dosage: 1 TABLET DAILY
     Route: 065
  12. BACTRIM FORTE [Concomitant]
     Dosage: 1 TABLET
     Route: 065
  13. INEXIUM [Concomitant]
     Dosage: 1 TABLET DAILY
     Route: 065
  14. ATARAX [Concomitant]

REACTIONS (4)
  - Drug eruption [Recovered/Resolved]
  - Henoch-Schonlein purpura [Recovering/Resolving]
  - Pyrexia [Recovered/Resolved]
  - Angioedema [None]
